FAERS Safety Report 4273673-4 (Version None)
Quarter: 2004Q1

REPORT INFORMATION
  Report Type: 
  Country: None (occurrence: None)
  Receive Date: 20040116
  Receipt Date: 20040116
  Transmission Date: 20041129
  Serious: Yes (Other)
  Sender: FDA-Public Use
  Company Number: None

PATIENT
  Sex: Female
  Weight: 50.8029 kg

DRUGS (1)
  1. ESTRADIOL [Suspect]
     Indication: HORMONE REPLACEMENT THERAPY
     Dosage: 0.05MG/DAY TRANSDERMAL PATCH-7 DAY
     Route: 062
     Dates: start: 20030627

REACTIONS (1)
  - PHARMACEUTICAL PRODUCT COMPLAINT [None]
